FAERS Safety Report 6619165-6 (Version None)
Quarter: 2010Q1

REPORT INFORMATION
  Report Type: 
  Country: None (occurrence: None)
  Receive Date: 20100304
  Receipt Date: 20100304
  Transmission Date: 20100710
  Serious: No
  Sender: FDA-Public Use
  Company Number: None

PATIENT
  Sex: Female
  Weight: 52.1637 kg

DRUGS (2)
  1. ZICAM NASAL GEL [Suspect]
     Dates: start: 20031101, end: 20090401
  2. ZICAM NASAL SWABS [Suspect]

REACTIONS (1)
  - ANOSMIA [None]
